FAERS Safety Report 5603252-5 (Version None)
Quarter: 2008Q1

REPORT INFORMATION
  Report Type: 
  Country: None (occurrence: None)
  Receive Date: 20080122
  Receipt Date: 20080107
  Transmission Date: 20080703
  Serious: Yes (Death, Hospitalization)
  Sender: FDA-Public Use
  Company Number: MPS1-1000007

PATIENT
  Sex: Male

DRUGS (2)
  1. ALDURAZYME [Suspect]
     Indication: MUCOPOLYSACCHARIDOSIS I
     Dosage: 1.2 MG/KG, QW, INTRAVENOUS; 0.58 MG/KG, QW, INTRAVENOUS
     Route: 042
     Dates: start: 20050308, end: 20050801
  2. ALDURAZYME [Suspect]
     Indication: MUCOPOLYSACCHARIDOSIS I
     Dosage: 1.2 MG/KG, QW, INTRAVENOUS; 0.58 MG/KG, QW, INTRAVENOUS
     Route: 042
     Dates: start: 20050901, end: 20061116

REACTIONS (7)
  - CARDIO-RESPIRATORY ARREST [None]
  - EAR INFECTION [None]
  - NO THERAPEUTIC RESPONSE [None]
  - REFUSAL OF TREATMENT BY RELATIVE [None]
  - RESPIRATORY DISORDER [None]
  - RESPIRATORY FAILURE [None]
  - SINUSITIS [None]
